FAERS Safety Report 4499002-9 (Version None)
Quarter: 2004Q4

REPORT INFORMATION
  Report Type: 
  Country: None (occurrence: None)
  Receive Date: 20041108
  Receipt Date: 20041022
  Transmission Date: 20050328
  Serious: Yes (Death, Hospitalization)
  Sender: FDA-Public Use
  Company Number: 2004240836FR

PATIENT
  Age: 50 Year
  Sex: Male

DRUGS (8)
  1. MEDROL [Suspect]
     Indication: INTRACRANIAL PRESSURE INCREASED
     Dosage: 200 MG, QD, ORAL
     Route: 048
     Dates: start: 20040501, end: 20040617
  2. TEMODAL [Suspect]
     Indication: GLIOBLASTOMA
     Dosage: 135 MG, QD, ORAL
     Route: 048
     Dates: start: 20040510, end: 20040617
  3. RADIO THERAPY() [Suspect]
  4. NEURONTIN [Concomitant]
  5. TRANDOLAPRIL (TRANDOLAPRIL [Concomitant]
  6. PRAVASTATIN [Concomitant]
  7. KYTRIL [Concomitant]
  8. FLUDEX [Concomitant]

REACTIONS (2)
  - LISTERIA SEPSIS [None]
  - SEPTIC SHOCK [None]
